FAERS Safety Report 19533035 (Version 1)
Quarter: 2021Q3

REPORT INFORMATION
  Report Type: Report from Study
  Country: US (occurrence: US)
  Receive Date: 20210713
  Receipt Date: 20210713
  Transmission Date: 20211014
  Serious: Yes (Other)
  Sender: FDA-Public Use
  Company Number: US-JNJFOC-20210711352

PATIENT
  Sex: Male

DRUGS (2)
  1. SPRAVATO [Suspect]
     Active Substance: ESKETAMINE
     Indication: DEPRESSION
     Dosage: 1 DOSE
     Dates: start: 20201207, end: 20201207
  2. SPRAVATO [Suspect]
     Active Substance: ESKETAMINE
     Dosage: 18 DOSES
     Dates: start: 20201210

REACTIONS (1)
  - COVID-19 [Unknown]
